FAERS Safety Report 24972421 (Version 1)
Quarter: 2025Q1

REPORT INFORMATION
  Report Type: Report from Study
  Country: US (occurrence: None)
  Receive Date: 20250215
  Receipt Date: 20250215
  Transmission Date: 20250408
  Serious: Yes (Hospitalization, Other)
  Sender: ALEXION PHARMACEUTICALS
  Company Number: US-AstraZeneca-2013SE89587

PATIENT
  Age: 68 Year
  Weight: 82.1 kg

DRUGS (39)
  1. NEXIUM [Suspect]
     Active Substance: ESOMEPRAZOLE MAGNESIUM
     Indication: Erosive oesophagitis
     Dosage: 40 MILLIGRAM, BID
  2. NEXIUM [Suspect]
     Active Substance: ESOMEPRAZOLE MAGNESIUM
     Indication: Gastrooesophageal reflux disease
     Dosage: 40 MILLIGRAM, QD
  3. NEXIUM [Suspect]
     Active Substance: ESOMEPRAZOLE MAGNESIUM
     Indication: Ulcer
     Dosage: 20 MILLIGRAM, QD
  4. NEXIUM [Suspect]
     Active Substance: ESOMEPRAZOLE MAGNESIUM
     Indication: Helicobacter infection
     Dosage: 40 MILLIGRAM, QD
  5. NEXIUM [Suspect]
     Active Substance: ESOMEPRAZOLE MAGNESIUM
     Indication: Hernia
  6. NEXIUM [Suspect]
     Active Substance: ESOMEPRAZOLE MAGNESIUM
     Indication: Gastrooesophageal reflux disease
  7. TOPROL XL [Suspect]
     Active Substance: METOPROLOL SUCCINATE
     Indication: Hypertension
  8. TOPROL XL [Suspect]
     Active Substance: METOPROLOL SUCCINATE
  9. TOPROL XL [Suspect]
     Active Substance: METOPROLOL SUCCINATE
     Dosage: 100 MILLIGRAM, QD
  10. NEXIUM [Suspect]
     Active Substance: ESOMEPRAZOLE MAGNESIUM
     Indication: Gastrooesophageal reflux disease
  11. NEXIUM [Suspect]
     Active Substance: ESOMEPRAZOLE MAGNESIUM
     Indication: Erosive oesophagitis
     Dosage: 40 MILLIGRAM, BID
  12. PRILOSEC OTC [Suspect]
     Active Substance: OMEPRAZOLE MAGNESIUM
  13. SYMBICORT [Suspect]
     Active Substance: BUDESONIDE\FORMOTEROL FUMARATE DIHYDRATE
     Indication: Asthma
  14. SYMBICORT [Suspect]
     Active Substance: BUDESONIDE\FORMOTEROL FUMARATE DIHYDRATE
     Indication: Dyspnoea
     Dosage: 2 PUFFS, TWO TIMES A DAY
  15. TUMS [Suspect]
     Active Substance: CALCIUM CARBONATE
     Route: 065
  16. TAGAMET [Concomitant]
     Active Substance: CIMETIDINE
     Indication: Erosive oesophagitis
     Dosage: 300 MILLIGRAM, QD
  17. TAGAMET [Concomitant]
     Active Substance: CIMETIDINE
     Indication: Gastrooesophageal reflux disease
  18. TAGAMET [Concomitant]
     Active Substance: CIMETIDINE
     Indication: Gastrooesophageal reflux disease
  19. LASIX [Concomitant]
     Active Substance: FUROSEMIDE
     Indication: Fluid retention
     Dosage: 40 MILLIGRAM, QD
  20. LASIX [Concomitant]
     Active Substance: FUROSEMIDE
     Indication: Blood pressure abnormal
  21. LIPITOR [Concomitant]
     Active Substance: ATORVASTATIN CALCIUM
     Indication: Blood cholesterol increased
     Dosage: 40 MILLIGRAM, QD
  22. LIPITOR [Concomitant]
     Active Substance: ATORVASTATIN CALCIUM
  23. LIPITOR [Concomitant]
     Active Substance: ATORVASTATIN CALCIUM
  24. LIPITOR [Concomitant]
     Active Substance: ATORVASTATIN CALCIUM
     Dosage: 40 MILLIGRAM, QD
  25. HYDROXYCHLOROQUINE [Concomitant]
     Active Substance: HYDROXYCHLOROQUINE
     Indication: Systemic lupus erythematosus
     Dosage: 200 MILLIGRAM, QD
  26. CYMBALTA [Concomitant]
     Active Substance: DULOXETINE HYDROCHLORIDE
     Indication: Multiple sclerosis
     Dosage: 60 MILLIGRAM, QD
  27. AMBIEN [Concomitant]
     Active Substance: ZOLPIDEM TARTRATE
     Indication: Insomnia
     Dosage: 10 MILLIGRAM, QD
  28. AMBIEN [Concomitant]
     Active Substance: ZOLPIDEM TARTRATE
     Indication: Restlessness
  29. NORVASC [Concomitant]
     Active Substance: AMLODIPINE BESYLATE
     Indication: Hypertension
     Dosage: 5 MILLIGRAM, QD
  30. NORVASC [Concomitant]
     Active Substance: AMLODIPINE BESYLATE
  31. NORVASC [Concomitant]
     Active Substance: AMLODIPINE BESYLATE
     Dosage: 40 MILLIGRAM, QD
  32. KEPPRA [Concomitant]
     Active Substance: LEVETIRACETAM
     Indication: Seizure
     Dosage: 250 MILLIGRAM, QD
  33. KEPPRA [Concomitant]
     Active Substance: LEVETIRACETAM
     Dosage: 250 MILLIGRAM, BID
  34. PLAQUENIL [Concomitant]
     Active Substance: HYDROXYCHLOROQUINE SULFATE
     Indication: Systemic lupus erythematosus
     Dosage: 100 MILLIGRAM, QD
  35. PLAQUENIL [Concomitant]
     Active Substance: HYDROXYCHLOROQUINE SULFATE
     Dosage: 400 MILLIGRAM, QD
  36. PLAQUENIL [Concomitant]
     Active Substance: HYDROXYCHLOROQUINE SULFATE
     Dosage: 200 MILLIGRAM, QD
  37. ASPIRIN [Concomitant]
     Active Substance: ASPIRIN
     Indication: Anticoagulant therapy
  38. PREDNISONE [Concomitant]
     Active Substance: PREDNISONE
     Dosage: 5 MILLIGRAM, QD
  39. PROVIGIL [Concomitant]
     Active Substance: MODAFINIL
     Indication: Sleep apnoea syndrome
     Dosage: 100 MILLIGRAM, QD

REACTIONS (29)
  - Seizure [Not Recovered/Not Resolved]
  - Diarrhoea haemorrhagic [Unknown]
  - Oesophageal disorder [Unknown]
  - Nausea [Unknown]
  - Constipation [Unknown]
  - Vomiting [Unknown]
  - Insomnia [Not Recovered/Not Resolved]
  - Weight increased [Unknown]
  - Hypoacusis [Unknown]
  - Blood pressure increased [Unknown]
  - Pain [Unknown]
  - Lung neoplasm [Unknown]
  - Erosive oesophagitis [Unknown]
  - Throat irritation [Unknown]
  - Kidney infection [Unknown]
  - Gastrooesophageal reflux disease [Unknown]
  - Systemic lupus erythematosus [Not Recovered/Not Resolved]
  - Multiple sclerosis [Not Recovered/Not Resolved]
  - Blood pressure inadequately controlled [Not Recovered/Not Resolved]
  - Tremor [Not Recovered/Not Resolved]
  - Gait disturbance [Not Recovered/Not Resolved]
  - Dyspepsia [Not Recovered/Not Resolved]
  - Oesophageal pain [Not Recovered/Not Resolved]
  - Abdominal pain upper [Not Recovered/Not Resolved]
  - Product dose omission issue [Not Recovered/Not Resolved]
  - Off label use [Not Recovered/Not Resolved]
  - Intentional product misuse [Unknown]
  - Intentional product misuse [Unknown]
  - Drug ineffective [Unknown]
